FAERS Safety Report 6309935-6 (Version None)
Quarter: 2009Q3

REPORT INFORMATION
  Report Type: 
  Country: None (occurrence: None)
  Receive Date: 20090814
  Receipt Date: 20090807
  Transmission Date: 20100115
  Serious: Yes (Death, Hospitalization)
  Sender: FDA-Public Use
  Company Number: B0583839A

PATIENT
  Sex: Male

DRUGS (4)
  1. LAPATINIB [Suspect]
     Route: 048
     Dates: start: 20090615, end: 20090705
  2. XELODA [Suspect]
     Dates: start: 20090615, end: 20090628
  3. MEGACE [Suspect]
     Indication: DECREASED APPETITE
     Dosage: 800MG PER DAY
     Route: 048
     Dates: end: 20090715
  4. INSULIN [Concomitant]

REACTIONS (6)
  - ADRENAL INSUFFICIENCY [None]
  - DECREASED APPETITE [None]
  - FATIGUE [None]
  - HYPOGLYCAEMIA [None]
  - HYPONATRAEMIA [None]
  - HYPOTENSION [None]
